FAERS Safety Report 23286999 (Version 9)
Quarter: 2024Q3

REPORT INFORMATION
  Report Type: Report from Study
  Country: US (occurrence: US)
  Receive Date: 20231212
  Receipt Date: 20240922
  Transmission Date: 20241017
  Serious: Yes (Hospitalization, Other)
  Sender: JOHNSON AND JOHNSON
  Company Number: US-JNJFOC-20231206592

PATIENT
  Age: 56 Year
  Sex: Female
  Weight: 49.3 kg

DRUGS (8)
  1. DARATUMUMAB [Suspect]
     Active Substance: DARATUMUMAB
     Indication: Plasma cell myeloma
     Route: 058
     Dates: start: 20231108, end: 20231115
  2. POMALIDOMIDE [Suspect]
     Active Substance: POMALIDOMIDE
     Indication: Plasma cell myeloma
     Route: 048
     Dates: start: 20231108, end: 20231121
  3. DEXAMETHASONE [Suspect]
     Active Substance: DEXAMETHASONE
     Indication: Plasma cell myeloma
     Route: 048
     Dates: start: 20231108, end: 20231115
  4. DEXAMETHASONE [Suspect]
     Active Substance: DEXAMETHASONE
     Route: 048
     Dates: start: 20231108, end: 20231115
  5. FILGRASTIM [Concomitant]
     Active Substance: FILGRASTIM
  6. ACETAMINOPHEN [Concomitant]
     Active Substance: ACETAMINOPHEN
     Indication: Pyrexia
  7. VANCOMYCIN [Concomitant]
     Active Substance: VANCOMYCIN
  8. PIPERACILLIN AND TAZOBACTAM [Concomitant]
     Active Substance: PIPERACILLIN SODIUM\TAZOBACTAM SODIUM

REACTIONS (3)
  - Febrile neutropenia [Recovered/Resolved]
  - Presyncope [Recovered/Resolved]
  - Pancytopenia [Unknown]

NARRATIVE: CASE EVENT DATE: 20231124
